FAERS Safety Report 8008826-2 (Version None)
Quarter: 2011Q4

REPORT INFORMATION
  Report Type: 
  Country: None (occurrence: None)
  Receive Date: 20111221
  Receipt Date: 20111212
  Transmission Date: 20120403
  Serious: Yes (Other)
  Sender: FDA-Public Use
  Company Number: TPA2011A08392

PATIENT
  Age: 73 Year
  Sex: Male

DRUGS (4)
  1. GLIPIIZIDE ER (GLIPIZIDE) [Concomitant]
  2. METFORMIN ER (METFORMIN HYDROCHLORIDE) [Concomitant]
  3. ACTOS [Suspect]
     Indication: TYPE 2 DIABETES MELLITUS
     Dosage: 30 MG, 1 IN 1 D, PER ORAL
     Route: 048
     Dates: end: 20111208
  4. TAMSULOSIN HCL [Concomitant]

REACTIONS (1)
  - BLADDER CANCER [None]
